FAERS Safety Report 5236398-4 (Version None)
Quarter: 2007Q1

REPORT INFORMATION
  Report Type: 
  Country: None (occurrence: None)
  Receive Date: 20070208
  Receipt Date: 20070126
  Transmission Date: 20070707
  Serious: Yes (Other)
  Sender: FDA-Public Use
  Company Number: 2007BM000009

PATIENT
  Age: 49 Year
  Sex: Male

DRUGS (3)
  1. PREDNISOLONE [Suspect]
     Indication: POLYMYOSITIS
     Dosage: 1 MG/KG; QD;
     Dates: start: 20010417
  2. CYCLOSPORINE [Suspect]
     Indication: POLYMYOSITIS
     Dosage: 150 MG; QD;
     Dates: start: 20010417
  3. ORAPRED [Suspect]

REACTIONS (1)
  - PNEUMATOSIS INTESTINALIS [None]
